FAERS Safety Report 15936895 (Version 1)
Quarter: 2019Q1

REPORT INFORMATION
  Report Type: Spontaneous
  Country: US (occurrence: US)
  Receive Date: 20190208
  Receipt Date: 20190208
  Transmission Date: 20190417
  Serious: Yes (Other)
  Sender: FDA-Public Use
  Company Number: US-BAUSCH-BL-2019-003308

PATIENT
  Sex: Female

DRUGS (2)
  1. TRAZODONE [Suspect]
     Active Substance: TRAZODONE HYDROCHLORIDE
     Indication: SLEEP DISORDER
     Route: 065
  2. ATIVAN [Suspect]
     Active Substance: LORAZEPAM
     Indication: SLEEP DISORDER
     Dosage: STARTED: 4 TO 5 MONTHS AGO
     Route: 065
     Dates: start: 2018

REACTIONS (4)
  - Treatment noncompliance [Unknown]
  - Paranoia [Unknown]
  - Hallucination [Unknown]
  - Delirium [Unknown]

NARRATIVE: CASE EVENT DATE: 2018
